FAERS Safety Report 6714109 (Version 2)
Quarter: 2015Q4

REPORT INFORMATION
  Report Type: Spontaneous
  Country: FR (occurrence: FR)
  Receive Date: 20080730
  Receipt Date: 20151120
  Transmission Date: 20160305
  Serious: Yes (Hospitalization, Other)
  Sender: FDA-Public Use
  Company Number: FR-TEVA-173757ISR

PATIENT
  Age: 42 Year
  Sex: Male

DRUGS (3)
  1. CARBOPLATIN. [Concomitant]
     Active Substance: CARBOPLATIN
     Dates: start: 20060823
  2. ETOPOSIDE TEVA [Suspect]
     Active Substance: ETOPOSIDE
     Indication: PHARYNGEAL NEOPLASM
     Dates: start: 20060823, end: 20061117
  3. ZOPHREN [Concomitant]
     Active Substance: ONDANSETRON
     Dates: start: 20061025

REACTIONS (9)
  - Paraparesis [Unknown]
  - Neurogenic bladder [Unknown]
  - Neuropathy peripheral [Unknown]
  - Pyramidal tract syndrome [Unknown]
  - Paraplegia [Unknown]
  - Myelitis [Unknown]
  - Conversion disorder [Unknown]
  - Paresis [Unknown]
  - Limb discomfort [Unknown]

NARRATIVE: CASE EVENT DATE: 200309
